FAERS Safety Report 20629379 (Version 4)
Quarter: 2022Q4

REPORT INFORMATION
  Report Type: Report from Study
  Country: US (occurrence: US)
  Receive Date: 20220323
  Receipt Date: 20221003
  Transmission Date: 20230113
  Serious: Yes (Hospitalization, Other)
  Sender: FDA-Public Use
  Company Number: US-ALXN-A202203687

PATIENT
  Age: 76 Year
  Sex: Male
  Weight: 130 kg

DRUGS (21)
  1. RAVULIZUMAB [Suspect]
     Active Substance: RAVULIZUMAB
     Indication: Myasthenia gravis
     Dosage: 720 ML, UNK
     Route: 042
     Dates: start: 20210315
  2. RAVULIZUMAB [Suspect]
     Active Substance: RAVULIZUMAB
     Indication: Myasthenia gravis
     Dosage: UNK
     Route: 042
     Dates: start: 20200914, end: 20210315
  3. RAVULIZUMAB [Suspect]
     Active Substance: RAVULIZUMAB
     Dosage: UNK
     Route: 042
     Dates: start: 20210329
  4. BROMELAINS [Concomitant]
     Active Substance: BROMELAINS
     Indication: Immune enhancement therapy
     Dosage: UNK UNK, QD
     Route: 048
     Dates: start: 20171001
  5. COQ [Concomitant]
     Indication: Supplementation therapy
     Dosage: 200 MG, QD
     Route: 048
     Dates: start: 20180818
  6. ELIQUIS [Concomitant]
     Active Substance: APIXABAN
     Indication: Atrial fibrillation
     Dosage: 5 MG, BID
     Route: 048
     Dates: start: 20211209
  7. GLUCOSAMINE CHONDROITIN            /01430901/ [Concomitant]
     Indication: Arthritis
     Dosage: UNK, BID
     Route: 048
     Dates: start: 20201001
  8. IMURAN                             /00001501/ [Concomitant]
     Indication: Myasthenia gravis
     Dosage: 112.5 MG, BID
     Route: 048
     Dates: start: 20190309
  9. IMURAN                             /00001501/ [Concomitant]
     Dosage: 50 MG, BID
     Route: 048
     Dates: start: 20190924
  10. LIPITOR [Concomitant]
     Active Substance: ATORVASTATIN CALCIUM
     Indication: Hyperlipidaemia
     Dosage: 20 MG, QD
     Route: 048
     Dates: start: 20190404
  11. LOPRESSOR [Concomitant]
     Active Substance: METOPROLOL TARTRATE
     Indication: Hypertension
     Dosage: 25 MG, BID
     Route: 048
     Dates: start: 20190408
  12. LOPRESSOR [Concomitant]
     Active Substance: METOPROLOL TARTRATE
     Dosage: 50 MG, BID
     Route: 048
     Dates: start: 20211209
  13. LOVAZA [Concomitant]
     Active Substance: OMEGA-3-ACID ETHYL ESTERS
     Indication: Supplementation therapy
     Dosage: 1 G, BID
     Route: 048
     Dates: start: 20190326
  14. MESTINON [Concomitant]
     Active Substance: PYRIDOSTIGMINE BROMIDE
     Indication: Myasthenia gravis
     Dosage: 60 MG, BID
     Route: 048
     Dates: start: 20191217
  15. MINERALS\VITAMINS [Concomitant]
     Active Substance: MINERALS\VITAMINS
     Indication: Supplementation therapy
     Dosage: UNK, QD
     Route: 048
  16. NORCO [Concomitant]
     Active Substance: ACETAMINOPHEN\HYDROCODONE BITARTRATE
     Indication: Pain
     Dosage: 10 MG/325 MG, PRN (EVERY 4-6 HR)
     Route: 048
     Dates: start: 20190528
  17. NORVASC [Concomitant]
     Active Substance: AMLODIPINE BESYLATE
     Indication: Hypertension
     Dosage: 5 MG, QD
     Route: 048
     Dates: start: 20190528
  18. PREDNISOLONE [Concomitant]
     Active Substance: PREDNISOLONE
     Indication: Myasthenia gravis
     Dosage: 10 MG, QD
     Route: 048
     Dates: start: 20191217
  19. PREDNISONE [Concomitant]
     Active Substance: PREDNISONE
     Indication: Myasthenia gravis
     Dosage: 1 MG, TID
     Route: 048
     Dates: start: 20190601
  20. PREDNISONE [Concomitant]
     Active Substance: PREDNISONE
     Dosage: 10 MG, QD
     Route: 048
     Dates: start: 20191217
  21. HYDROCHLOROTHIAZIDE\SPIRONOLACTONE [Concomitant]
     Active Substance: HYDROCHLOROTHIAZIDE\SPIRONOLACTONE
     Indication: Hypertension
     Dosage: 25 MG, QD
     Route: 048
     Dates: start: 20190604

REACTIONS (1)
  - Cellulitis [Recovered/Resolved]

NARRATIVE: CASE EVENT DATE: 20220311
